FAERS Safety Report 7201010-1 (Version None)
Quarter: 2010Q4

REPORT INFORMATION
  Report Type: 
  Country: None (occurrence: None)
  Receive Date: 20101228
  Receipt Date: 20100928
  Transmission Date: 20110411
  Serious: No
  Sender: FDA-Public Use
  Company Number: US-MYLANLABS-2010S1017989

PATIENT
  Age: 70 Year
  Sex: Male

DRUGS (3)
  1. BALSALAZIDE DISODIUM [Suspect]
     Indication: COLITIS ULCERATIVE
     Route: 048
     Dates: start: 20100926
  2. SYNTHROID [Concomitant]
     Route: 048
  3. FLOMAX [Concomitant]

REACTIONS (1)
  - DIARRHOEA [None]
